FAERS Safety Report 24350847 (Version 2)
Quarter: 2024Q4

REPORT INFORMATION
  Report Type: Spontaneous
  Country: NL (occurrence: NL)
  Receive Date: 20240923
  Receipt Date: 20241002
  Transmission Date: 20250114
  Serious: Yes (Other)
  Sender: ASTELLAS
  Company Number: NL-VELOXIS PHARMACEUTICALS, INC.-2024-VEL-00486

PATIENT
  Age: 35 Year
  Sex: Male

DRUGS (3)
  1. TACROLIMUS [Suspect]
     Active Substance: TACROLIMUS
     Indication: Renal transplant
     Dosage: 15 MILLIGRAM, QD
     Route: 065
     Dates: start: 2016, end: 2023
  2. TACROLIMUS [Suspect]
     Active Substance: TACROLIMUS
     Dosage: TAPERED DOSE
     Route: 065
     Dates: start: 2023, end: 2023
  3. PREDNISONE [Concomitant]
     Active Substance: PREDNISONE
     Indication: Renal transplant
     Dosage: 10 MILLIGRAM, QD
     Route: 065
     Dates: start: 2016

REACTIONS (6)
  - Cutaneous T-cell lymphoma recurrent [Recovered/Resolved]
  - Herpes zoster [Unknown]
  - Cytomegalovirus infection reactivation [Unknown]
  - Cytomegalovirus colitis [Unknown]
  - Herpes zoster disseminated [Unknown]
  - BK virus infection [Unknown]

NARRATIVE: CASE EVENT DATE: 20211001
